FAERS Safety Report 19324824 (Version 1)
Quarter: 2021Q2

REPORT INFORMATION
  Report Type: Spontaneous
  Country: US (occurrence: US)
  Receive Date: 20210528
  Receipt Date: 20210528
  Transmission Date: 20210717
  Serious: Yes (Other)
  Sender: FDA-Public Use
  Company Number: US-SNT-000059

PATIENT
  Age: 38 Year
  Sex: Male

DRUGS (10)
  1. PROPRANOLOL [Suspect]
     Active Substance: PROPRANOLOL HYDROCHLORIDE
     Indication: AKATHISIA
     Dosage: 20 MG ORALLY TWICE DAILY
     Route: 048
  2. BUPROPION. [Suspect]
     Active Substance: BUPROPION
     Indication: SMOKING CESSATION THERAPY
     Dosage: 150 MG
     Route: 048
  3. PRAZOSIN. [Suspect]
     Active Substance: PRAZOSIN
     Indication: NIGHTMARE
     Dosage: 12 MG ORALLY AT BEDTIME
     Route: 048
  4. CLOZAPINE. [Suspect]
     Active Substance: CLOZAPINE
     Indication: PSYCHOTIC DISORDER
     Dosage: 500 MG ORALLY AT BEDTIME
     Route: 048
  5. PAROXETINE. [Suspect]
     Active Substance: PAROXETINE
     Indication: AFFECTIVE DISORDER
     Dosage: 20 MG ORALLY DAILY
     Route: 048
  6. CLOZAPINE. [Suspect]
     Active Substance: CLOZAPINE
     Indication: PSYCHOTIC DISORDER
     Dosage: 50 MG ORALLY IN THE MORNING AND 500 MG ORALLY AT BEDTIME
     Route: 048
  7. BENZATROPINE [Suspect]
     Active Substance: BENZTROPINE
     Indication: DROOLING
     Dosage: 2 MG ORALLY AT BEDTIME
     Route: 048
  8. CLOZAPINE. [Suspect]
     Active Substance: CLOZAPINE
     Indication: PSYCHOTIC DISORDER
     Dosage: 500 MG ORALLY IN THE EVENING
     Route: 048
  9. GABAPENTIN. [Suspect]
     Active Substance: GABAPENTIN
     Indication: PSYCHIATRIC SYMPTOM
     Dosage: 1200 MG ORALLY AT BEDTIME
     Route: 048
  10. GABAPENTIN. [Suspect]
     Active Substance: GABAPENTIN
     Indication: PSYCHIATRIC SYMPTOM
     Dosage: 600 MG ORALLY TWICE DAILY
     Route: 048

REACTIONS (7)
  - Tardive dyskinesia [Unknown]
  - Condition aggravated [Unknown]
  - Urinary incontinence [Unknown]
  - Tongue biting [Unknown]
  - Myalgia [Unknown]
  - Epilepsy [Recovered/Resolved]
  - Drug ineffective for unapproved indication [Unknown]
